FAERS Safety Report 9699102 (Version 2)
Quarter: 2013Q4

REPORT INFORMATION
  Report Type: Spontaneous
  Country: JP (occurrence: JP)
  Receive Date: 20131120
  Receipt Date: 20131120
  Transmission Date: 20140711
  Serious: Yes (Hospitalization, Other)
  Sender: FDA-Public Use
  Company Number: JP-TAKEDA-TCI2013A00236

PATIENT
  Age: 78 Year
  Sex: Male

DRUGS (1)
  1. NESINA [Suspect]
     Indication: HYPERGLYCAEMIA
     Dosage: 6.25 MG, QD
     Route: 048
     Dates: end: 201207

REACTIONS (1)
  - Ileus [Recovered/Resolved]
